FAERS Safety Report 5615191-4 (Version None)
Quarter: 2008Q1

REPORT INFORMATION
  Report Type: 
  Country: None (occurrence: None)
  Receive Date: 20080206
  Receipt Date: 20080129
  Transmission Date: 20080703
  Serious: Yes (Other)
  Sender: FDA-Public Use
  Company Number: PHHY2007CA00848

PATIENT
  Age: 47 Year
  Sex: Female

DRUGS (3)
  1. CLOZARIL [Suspect]
     Indication: BIPOLAR DISORDER
     Dosage: UNK, UNK
     Route: 048
     Dates: start: 20070416, end: 20070827
  2. EPIVAL [Concomitant]
     Dosage: 500 MG, BID
  3. ATIVAN [Concomitant]
     Dosage: 0.5 MG TID
     Route: 060

REACTIONS (3)
  - ORTHOSTATIC HYPERTENSION [None]
  - PSYCHOMOTOR RETARDATION [None]
  - SEDATION [None]
